FAERS Safety Report 17749536 (Version 2)
Quarter: 2020Q2

REPORT INFORMATION
  Report Type: Report from Study
  Country: GR (occurrence: GR)
  Receive Date: 20200506
  Receipt Date: 20200512
  Transmission Date: 20200714
  Serious: Yes (Death)
  Sender: FDA-Public Use
  Company Number: GR-TAKEDA-2020TUS021178

PATIENT
  Age: 88 Year
  Sex: Female
  Weight: 70 kg

DRUGS (6)
  1. MEMANTIN [Concomitant]
     Active Substance: MEMANTINE
     Indication: DEMENTIA
     Dosage: 10 MILLIGRAM
     Route: 048
     Dates: start: 201609, end: 2020
  2. QUETIAPINE. [Concomitant]
     Active Substance: QUETIAPINE
     Indication: DEMENTIA
     Dosage: 10 MILLIGRAM
     Route: 048
     Dates: start: 201609, end: 2020
  3. IXAZOMIB [Suspect]
     Active Substance: IXAZOMIB
     Indication: PLASMA CELL MYELOMA
     Dosage: 4 MILLIGRAM
     Route: 048
     Dates: start: 20200128
  4. AMLODIPINE [Concomitant]
     Active Substance: AMLODIPINE BESYLATE
     Indication: HYPERTENSION
     Dosage: 5 MILLIGRAM
     Route: 048
     Dates: start: 201609, end: 2020
  5. DEXAMETHASONE. [Suspect]
     Active Substance: DEXAMETHASONE
     Indication: PLASMA CELL MYELOMA
     Dosage: 40 MILLIGRAM
     Route: 048
     Dates: start: 20200128, end: 202004
  6. LENALIDOMIDE [Suspect]
     Active Substance: LENALIDOMIDE
     Indication: PLASMA CELL MYELOMA
     Dosage: 25 MILLIGRAM
     Route: 048
     Dates: start: 20200128, end: 202004

REACTIONS (1)
  - Death [Fatal]

NARRATIVE: CASE EVENT DATE: 20200415
